FAERS Safety Report 8399026-5 (Version None)
Quarter: 2012Q2

REPORT INFORMATION
  Report Type: 
  Country: None (occurrence: None)
  Receive Date: 20120531
  Receipt Date: 20120523
  Transmission Date: 20120825
  Serious: Yes (Other)
  Sender: FDA-Public Use
  Company Number: US-ELI_LILLY_AND_COMPANY-US201205010043

PATIENT
  Sex: Female

DRUGS (5)
  1. EFFIENT [Suspect]
     Indication: PERCUTANEOUS CORONARY INTERVENTION
     Dosage: 60 MG, UNK
     Route: 048
  2. EFFIENT [Suspect]
     Dosage: 10 MG, QD
     Route: 048
  3. ANGIOMAX [Concomitant]
     Dosage: UNK
     Route: 042
  4. REOPRO [Concomitant]
     Route: 042
  5. HEPARIN SODIUM [Concomitant]
     Route: 042

REACTIONS (1)
  - CORONARY ARTERY OCCLUSION [None]
